FAERS Safety Report 6731763-8 (Version None)
Quarter: 2010Q2

REPORT INFORMATION
  Report Type: 
  Country: None (occurrence: None)
  Receive Date: 20100519
  Receipt Date: 20100511
  Transmission Date: 20101027
  Serious: Yes (Other)
  Sender: FDA-Public Use
  Company Number: US-PFIZER INC-2010059537

PATIENT
  Sex: Female
  Weight: 74.9 kg

DRUGS (2)
  1. LIPITOR [Suspect]
     Indication: BLOOD CHOLESTEROL INCREASED
     Dosage: 10 MG, DAILY
     Route: 048
     Dates: start: 20100201, end: 20100401
  2. SYNTHROID [Concomitant]
     Indication: THYROID DISORDER
     Dosage: 200 UG, UNK
     Route: 048

REACTIONS (4)
  - BACK PAIN [None]
  - HYPOAESTHESIA [None]
  - LIVER DISORDER [None]
  - PAIN IN EXTREMITY [None]
